FAERS Safety Report 7747593-4 (Version None)
Quarter: 2011Q3

REPORT INFORMATION
  Report Type: 
  Country: None (occurrence: None)
  Receive Date: 20110913
  Receipt Date: 20110907
  Transmission Date: 20111222
  Serious: Yes (Hospitalization)
  Sender: FDA-Public Use
  Company Number: GB-BAYER-2011-083892

PATIENT
  Age: 23 Year
  Sex: Female

DRUGS (5)
  1. CIPROFLOXACIN [Suspect]
     Indication: GASTROENTERITIS BACTERIAL
     Dosage: UNK
     Route: 042
  2. SULFAMETHOXAZOLE AND TRIMETHOPRIM [Concomitant]
     Indication: URINARY TRACT INFECTION
     Dosage: UNK
     Route: 048
  3. MEROPENEM [Concomitant]
     Indication: GASTROENTERITIS BACTERIAL
     Dosage: 1 G, TID
  4. METRONIDAZOLE [Concomitant]
     Indication: GASTROENTERITIS BACTERIAL
     Dosage: 400 MG, TID
  5. CIPROFLOXACIN [Suspect]
     Indication: TYPHOID FEVER
     Dosage: UNK
     Route: 048

REACTIONS (1)
  - OSTEOMYELITIS [None]
